FAERS Safety Report 4656782-7 (Version None)
Quarter: 2005Q2

REPORT INFORMATION
  Report Type: 
  Country: None (occurrence: None)
  Receive Date: 20050506
  Receipt Date: 20050429
  Transmission Date: 20051028
  Serious: Yes (Hospitalization, Disabling)
  Sender: FDA-Public Use
  Company Number: 2005GB00226

PATIENT
  Age: 65 Year
  Sex: Female

DRUGS (7)
  1. CRESTOR [Suspect]
     Indication: BLOOD CHOLESTEROL INCREASED
     Dosage: 10 MG HS PO
     Route: 048
     Dates: start: 20040708, end: 20041026
  2. CRESTOR [Suspect]
     Indication: HYPERTENSION
     Dosage: 10 MG HS PO
     Route: 048
     Dates: start: 20040708, end: 20041026
  3. DILTIAZEM [Concomitant]
  4. PERINDOPRIL [Concomitant]
  5. LANSOPRAZOLE [Concomitant]
  6. BECONASE [Concomitant]
  7. VENTOLIN [Concomitant]

REACTIONS (1)
  - HEPATOCELLULAR DAMAGE [None]
